FAERS Safety Report 5215677-0 (Version None)
Quarter: 2007Q1

REPORT INFORMATION
  Report Type: 
  Country: None (occurrence: None)
  Receive Date: 20070123
  Receipt Date: 20070112
  Transmission Date: 20070707
  Serious: Yes (Hospitalization)
  Sender: FDA-Public Use
  Company Number: FR-BAYER-200710049BFR

PATIENT
  Age: 69 Year
  Sex: Male

DRUGS (4)
  1. CIPROFLOXACIN [Suspect]
     Indication: UNEVALUABLE EVENT
     Dosage: TOTAL DAILY DOSE: 800 MG
     Route: 042
     Dates: start: 20060608, end: 20060611
  2. TICARPEN [Suspect]
     Indication: UNEVALUABLE EVENT
     Dosage: TOTAL DAILY DOSE: 9 G
     Route: 042
     Dates: start: 20060608, end: 20060611
  3. VANCOMYCIN HCL [Suspect]
     Indication: UNEVALUABLE EVENT
     Route: 042
     Dates: start: 20060607, end: 20060708
  4. GENTAMICIN [Suspect]
     Indication: UNEVALUABLE EVENT
     Dates: start: 20060607, end: 20060608

REACTIONS (3)
  - DRUG ERUPTION [None]
  - STAPHYLOCOCCAL SCALDED SKIN SYNDROME [None]
  - TOXIC EPIDERMAL NECROLYSIS [None]
